FAERS Safety Report 9376517 (Version 1)
Quarter: 2013Q3

REPORT INFORMATION
  Report Type: Spontaneous
  Country: US (occurrence: US)
  Receive Date: 20130701
  Receipt Date: 20130701
  Transmission Date: 20140515
  Serious: No
  Sender: FDA-Public Use
  Company Number: US-PFIZER INC-2013194356

PATIENT
  Age: 37 Year
  Sex: Male
  Weight: 63.49 kg

DRUGS (2)
  1. ZOLOFT [Suspect]
     Indication: OBSESSIVE-COMPULSIVE DISORDER
     Dosage: 25 MG, 1X/DAY
     Route: 048
     Dates: start: 201305, end: 201305
  2. ZOLOFT [Suspect]
     Dosage: 12.5 MG, 1X/DAY
     Route: 048
     Dates: start: 201305

REACTIONS (3)
  - Discomfort [Unknown]
  - Hypoaesthesia [Unknown]
  - Drug intolerance [Unknown]
